FAERS Safety Report 8613612-6 (Version None)
Quarter: 2012Q3

REPORT INFORMATION
  Report Type: 
  Country: None (occurrence: None)
  Receive Date: 20120823
  Receipt Date: 20120808
  Transmission Date: 20120928
  Serious: Yes (Hospitalization, Other)
  Sender: FDA-Public Use
  Company Number: US-009507513-2012SP034591

PATIENT

DRUGS (6)
  1. DIOVAN [Concomitant]
  2. AMLODIPINE [Concomitant]
  3. ALLOPURINOL [Concomitant]
  4. LIPITOR [Concomitant]
  5. INTRON A [Suspect]
     Indication: MALIGNANT MELANOMA
     Dosage: EACH DAY FOR 2 WEEKS
     Route: 042
     Dates: start: 20060401, end: 20060101
  6. RENVELA [Concomitant]

REACTIONS (5)
  - LOSS OF CONSCIOUSNESS [None]
  - FATIGUE [None]
  - BLOOD CREATININE INCREASED [None]
  - RENAL DISORDER [None]
  - MALAISE [None]
